FAERS Safety Report 8586503-7 (Version None)
Quarter: 2012Q3

REPORT INFORMATION
  Report Type: 
  Country: None (occurrence: None)
  Receive Date: 20120810
  Receipt Date: 20120802
  Transmission Date: 20120928
  Serious: Yes (Other)
  Sender: FDA-Public Use
  Company Number: JP-VERTEX PHARMACEUTICALS INC.-AE-2012-011713

PATIENT
  Age: 61 Year
  Sex: Male

DRUGS (18)
  1. TELAVIC (TELAPREVIR) [Suspect]
     Route: 048
     Dates: start: 20120703, end: 20120705
  2. ALLOPURINOL [Concomitant]
     Route: 048
     Dates: end: 20120521
  3. XYZAL [Concomitant]
     Route: 048
     Dates: start: 20120615
  4. PREDNISOLONE [Concomitant]
     Route: 048
     Dates: start: 20120703, end: 20120705
  5. NORVASC [Concomitant]
     Route: 048
  6. RIBAVIRIN [Concomitant]
     Route: 048
     Dates: start: 20120515
  7. SITAGLIPTIN PHOSPHATE [Concomitant]
     Route: 048
     Dates: start: 20120703, end: 20120709
  8. TELAVIC (TELAPREVIR) [Suspect]
     Indication: HEPATITIS C
     Route: 048
     Dates: start: 20120424, end: 20120611
  9. RIBAVIRIN [Concomitant]
     Route: 048
     Dates: start: 20120508, end: 20120514
  10. ALLOPURINOL [Concomitant]
     Route: 048
     Dates: start: 20120619
  11. RINDERON-V [Concomitant]
     Route: 061
     Dates: start: 20120703
  12. RABEPRAZOLE SODIUM [Concomitant]
     Route: 048
     Dates: start: 20120706, end: 20120718
  13. HIRUDOID [Concomitant]
     Route: 051
     Dates: start: 20120619
  14. LANTUS [Concomitant]
     Route: 051
     Dates: start: 20120710
  15. RIBAVIRIN [Concomitant]
     Route: 048
     Dates: start: 20120424, end: 20120507
  16. PEGINTERFERON ALFA-2B [Concomitant]
     Route: 058
  17. RABEPRAZOLE SODIUM [Concomitant]
     Route: 048
     Dates: start: 20120612, end: 20120630
  18. CLOBETASOL PROPIONATE [Concomitant]
     Route: 061
     Dates: start: 20120612

REACTIONS (2)
  - GENERALISED ERYTHEMA [None]
  - RENAL IMPAIRMENT [None]
